FAERS Safety Report 5870840-0 (Version None)
Quarter: 2008Q3

REPORT INFORMATION
  Report Type: 
  Country: None (occurrence: None)
  Receive Date: 20080829
  Receipt Date: 20080825
  Transmission Date: 20090109
  Serious: Yes (Hospitalization, Other)
  Sender: FDA-Public Use
  Company Number: 2008SP017399

PATIENT
  Age: 55 Year
  Sex: Female
  Weight: 63.05 kg

DRUGS (2)
  1. PEG-INTRON [Suspect]
     Indication: HEPATITIS C
     Dosage: 150 MCG
     Dates: start: 20080718
  2. REBETOL [Suspect]
     Indication: HEPATITIS C
     Dosage: PO
     Route: 048
     Dates: start: 20080718, end: 20080801

REACTIONS (12)
  - BALANCE DISORDER [None]
  - CONTUSION [None]
  - DIZZINESS [None]
  - DYSARTHRIA [None]
  - DYSPNOEA [None]
  - FEELING COLD [None]
  - HAEMOGLOBIN DECREASED [None]
  - HEADACHE [None]
  - HYPERVENTILATION [None]
  - PLATELET COUNT DECREASED [None]
  - TREMOR [None]
  - WHITE BLOOD CELL COUNT DECREASED [None]
